FAERS Safety Report 18139873 (Version 2)
Quarter: 2020Q3

REPORT INFORMATION
  Report Type: Spontaneous
  Country: CN (occurrence: CN)
  Receive Date: 20200812
  Receipt Date: 20200821
  Transmission Date: 20201103
  Serious: Yes (Other)
  Sender: FDA-Public Use
  Company Number: CN-ASTRAZENECA-2020SE97295

PATIENT
  Age: 58 Year
  Sex: Male
  Weight: 94 kg

DRUGS (3)
  1. IMFINZI [Suspect]
     Active Substance: DURVALUMAB
     Indication: LUNG NEOPLASM MALIGNANT
     Dosage: ONE BRANCH AT A TIME
     Route: 042
  2. IMFINZI [Suspect]
     Active Substance: DURVALUMAB
     Indication: LUNG NEOPLASM MALIGNANT
     Dosage: 2 VIALS, 500MG/10ML, ONCE EVERY TWO WEEKS, TWO INJECTIONS AT A TIME
     Route: 042
  3. CHEMOTHERAPY DRUGS [Concomitant]
     Active Substance: UNSPECIFIED INGREDIENT

REACTIONS (7)
  - Mood altered [Unknown]
  - Eczema [Not Recovered/Not Resolved]
  - Unresponsive to stimuli [Unknown]
  - Ulcer [Not Recovered/Not Resolved]
  - Neoplasm malignant [Unknown]
  - Eye disorder [Unknown]
  - Dizziness [Not Recovered/Not Resolved]
